FAERS Safety Report 9632682 (Version 1)
Quarter: 2013Q4

REPORT INFORMATION
  Report Type: Spontaneous
  Country: US (occurrence: US)
  Receive Date: 20131018
  Receipt Date: 20131018
  Transmission Date: 20140711
  Serious: Yes (Other)
  Sender: FDA-Public Use
  Company Number: US-BAYER-2013-123026

PATIENT
  Age: 70 Year
  Sex: Male
  Weight: 85 kg

DRUGS (3)
  1. CITRACAL CALCIUM + D SLOW RELEASE 1200 [Suspect]
     Dosage: 2 DF, QD WITH FOOD
     Route: 048
     Dates: start: 20131002, end: 20131006
  2. AMIODARONE [Concomitant]
  3. BAYER ASPIRIN REGIMEN ADULT LOW STRENGTH [Suspect]
     Dosage: 81 MG, UNK
     Dates: start: 2008

REACTIONS (3)
  - Blood urine present [Recovered/Resolved]
  - Haemorrhage urinary tract [Recovered/Resolved]
  - Abdominal discomfort [Recovered/Resolved]
